FAERS Safety Report 24966190 (Version 1)
Quarter: 2025Q1

REPORT INFORMATION
  Report Type: Spontaneous
  Country: US (occurrence: None)
  Receive Date: 20250212
  Receipt Date: 20250212
  Transmission Date: 20250408
  Serious: Yes (Death, Hospitalization)
  Sender: FDA-CTU
  Company Number: None

PATIENT
  Age: 72 Year
  Sex: Male
  Weight: 56 kg

DRUGS (2)
  1. WARFARIN SODIUM [Suspect]
     Active Substance: WARFARIN SODIUM
     Indication: Mitral valve replacement
     Dates: end: 20240821
  2. ASPIRIN [Suspect]
     Active Substance: ASPIRIN
     Indication: Cerebrovascular accident prophylaxis
     Dosage: FREQUENCY : DAILY;?
     Route: 048
     Dates: end: 20240821

REACTIONS (9)
  - Gastrointestinal haemorrhage [None]
  - International normalised ratio increased [None]
  - Vomiting [None]
  - Haematemesis [None]
  - Oxygen saturation decreased [None]
  - Blood pressure decreased [None]
  - Blood lactic acid increased [None]
  - Renal failure [None]
  - Shock haemorrhagic [None]

NARRATIVE: CASE EVENT DATE: 20240821
